FAERS Safety Report 13781557 (Version 1)
Quarter: 2017Q3

REPORT INFORMATION
  Report Type: Spontaneous
  Country: US (occurrence: US)
  Receive Date: 20170724
  Receipt Date: 20170724
  Transmission Date: 20171127
  Serious: Yes (Other)
  Sender: FDA-Public Use
  Company Number: None

PATIENT
  Age: 47 Year
  Sex: Male
  Weight: 49 kg

DRUGS (4)
  1. ENALAPRIL [Concomitant]
     Active Substance: ENALAPRIL
  2. BUPRENORPHINE. [Suspect]
     Active Substance: BUPRENORPHINE
     Indication: DEPENDENCE
     Dosage: ?          OTHER STRENGTH:MG;QUANTITY:0.5 TABLET(S);?
     Route: 060
     Dates: end: 20160301
  3. CALCITRIOL. [Concomitant]
     Active Substance: CALCITRIOL
  4. PROPRANOLOL [Concomitant]
     Active Substance: PROPRANOLOL HYDROCHLORIDE

REACTIONS (5)
  - Dizziness [None]
  - Decreased appetite [None]
  - Rash [None]
  - Fatigue [None]
  - Hallucination [None]

NARRATIVE: CASE EVENT DATE: 20170503
